FAERS Safety Report 19007319 (Version 1)
Quarter: 2021Q1

REPORT INFORMATION
  Report Type: Spontaneous
  Country: US (occurrence: US)
  Receive Date: 20210315
  Receipt Date: 20210315
  Transmission Date: 20210420
  Serious: Yes (Death)
  Sender: FDA-Public Use
  Company Number: None

PATIENT
  Age: 38 Year
  Sex: Female
  Weight: 65.25 kg

DRUGS (8)
  1. TOVIAZ [Concomitant]
     Active Substance: FESOTERODINE FUMARATE
  2. CAPECITABINE. [Suspect]
     Active Substance: CAPECITABINE
     Indication: BREAST CANCER
     Dosage: ?          OTHER FREQUENCY:3 IN AM, 2 IN PM;?
     Route: 048
     Dates: start: 20210122, end: 20210315
  3. BACLOFEN. [Concomitant]
     Active Substance: BACLOFEN
  4. LITHIUM CARBONATE. [Concomitant]
     Active Substance: LITHIUM CARBONATE
  5. TRINTELLIX [Concomitant]
     Active Substance: VORTIOXETINE HYDROBROMIDE
  6. XANAX [Concomitant]
     Active Substance: ALPRAZOLAM
  7. REXULTI [Concomitant]
     Active Substance: BREXPIPRAZOLE
  8. TRAZODONE HYDROCHLORIDE. [Concomitant]
     Active Substance: TRAZODONE HYDROCHLORIDE

REACTIONS (1)
  - Death [None]

NARRATIVE: CASE EVENT DATE: 20210315
